FAERS Safety Report 9287949 (Version 3)
Quarter: 2013Q2

REPORT INFORMATION
  Report Type: Spontaneous
  Country: JP (occurrence: JP)
  Receive Date: 20130514
  Receipt Date: 20130528
  Transmission Date: 20140414
  Serious: Yes (Hospitalization, Other)
  Sender: FDA-Public Use
  Company Number: JP-PFIZER INC-2013148216

PATIENT
  Age: 84 Year
  Sex: Male

DRUGS (9)
  1. LYRICA [Suspect]
     Indication: SPINAL COLUMN STENOSIS
     Dosage: FROM 75 MG TO 100 MG A DAY
     Route: 048
     Dates: start: 20111206, end: 20121010
  2. GLIMEPIRIDE [Concomitant]
     Indication: TYPE 2 DIABETES MELLITUS
     Dosage: 1 MG DAILY
     Route: 048
  3. CEREKINON [Concomitant]
     Indication: GASTRITIS
     Dosage: 300 MG DAILY
     Route: 048
  4. AMLODIN [Concomitant]
     Indication: HYPERTENSION
     Dosage: 5 MG DAILY
     Route: 048
  5. OLMETEC [Concomitant]
     Indication: HYPERTENSION
     Dosage: 20 MG DAILY
     Route: 048
  6. ATORVASTATIN [Concomitant]
     Indication: HYPERCHOLESTEROLAEMIA
     Dosage: 5 MG DAILY
     Route: 048
  7. ALLOZYM [Concomitant]
     Indication: HYPERURICAEMIA
     Dosage: 100 MG DAILY
     Route: 048
  8. BAYASPIRIN [Concomitant]
     Indication: ANGINA PECTORIS
     Dosage: 100 MG DAILY
     Route: 048
  9. WARFARIN [Concomitant]
     Indication: ATRIAL FIBRILLATION
     Dosage: 3 MG DAILY
     Route: 048

REACTIONS (6)
  - Loss of consciousness [Recovering/Resolving]
  - Road traffic accident [Recovered/Resolved]
  - Subarachnoid haemorrhage [Recovering/Resolving]
  - Brain contusion [Recovering/Resolving]
  - Rib fracture [Recovering/Resolving]
  - Monoplegia [Not Recovered/Not Resolved]
